FAERS Safety Report 7017307-4 (Version None)
Quarter: 2010Q3

REPORT INFORMATION
  Report Type: 
  Country: None (occurrence: None)
  Receive Date: 20100928
  Receipt Date: 20100917
  Transmission Date: 20110219
  Serious: No
  Sender: FDA-Public Use
  Company Number: US-BIOGENIDEC-2010BI032257

PATIENT
  Age: 61 Year
  Sex: Female

DRUGS (1)
  1. AVONEX [Suspect]
     Indication: MULTIPLE SCLEROSIS
     Route: 030
     Dates: start: 20100814

REACTIONS (11)
  - ARTHRALGIA [None]
  - COUGH [None]
  - HYPOAESTHESIA [None]
  - NASOPHARYNGITIS [None]
  - OEDEMA PERIPHERAL [None]
  - OROPHARYNGEAL PAIN [None]
  - PAINFUL RESPIRATION [None]
  - PARAESTHESIA [None]
  - PNEUMONIA [None]
  - PRURITUS [None]
  - SENSATION OF FOREIGN BODY [None]
